FAERS Safety Report 4438705-9 (Version None)
Quarter: 2004Q3

REPORT INFORMATION
  Report Type: 
  Country: None (occurrence: None)
  Receive Date: 20040830
  Receipt Date: 20040818
  Transmission Date: 20050211
  Serious: Yes (Death, Other)
  Sender: FDA-Public Use
  Company Number: 2004058042

PATIENT
  Age: 34 Year
  Sex: Male

DRUGS (2)
  1. NEURONTIN [Suspect]
     Indication: CARPAL TUNNEL SYNDROME
  2. NEURONTIN [Suspect]
     Indication: NEUROPATHY PERIPHERAL

REACTIONS (7)
  - ANXIETY [None]
  - CARPAL TUNNEL SYNDROME [None]
  - COMPLETED SUICIDE [None]
  - DRUG INEFFECTIVE [None]
  - INJURY [None]
  - NEUROPATHY PERIPHERAL [None]
  - PAIN [None]
